FAERS Safety Report 23869080 (Version 1)
Quarter: 2024Q2

REPORT INFORMATION
  Report Type: Spontaneous
  Country: JP (occurrence: JP)
  Receive Date: 20240517
  Receipt Date: 20240517
  Transmission Date: 20240716
  Serious: Yes (Death)
  Sender: FDA-Public Use
  Company Number: JP-BAYER-2024A072923

PATIENT
  Sex: Male

DRUGS (2)
  1. NUBEQA [Suspect]
     Active Substance: DAROLUTAMIDE
     Indication: Prostate cancer metastatic
     Dosage: DAILY DOSE 1200 MG
  2. LEUPROLIDE ACETATE [Concomitant]
     Active Substance: ISOPROPYL ALCOHOL\LEUPROLIDE ACETATE
     Indication: Prostate cancer
     Dosage: UNK

REACTIONS (2)
  - Infection [Fatal]
  - Sepsis [Fatal]
